FAERS Safety Report 11786190 (Version 2)
Quarter: 2015Q4

REPORT INFORMATION
  Report Type: Other
  Country: MY (occurrence: MY)
  Receive Date: 20151130
  Receipt Date: 20151207
  Transmission Date: 20160305
  Serious: Yes (Other)
  Sender: FDA-Public Use
  Company Number: MY-ASTELLAS-2015JP023483

PATIENT
  Age: 8 Year
  Sex: Male

DRUGS (2)
  1. TACROLIMUS. [Suspect]
     Active Substance: TACROLIMUS
     Dosage: MAXIMUM DOSE 2.5 MG  TWICE DAILY
     Route: 065
  2. TACROLIMUS. [Suspect]
     Active Substance: TACROLIMUS
     Indication: IMMUNOMODULATORY THERAPY
     Dosage: MAXIMUM DOSE, 6 MG, TWICE DAILY
     Route: 065

REACTIONS (5)
  - Bone marrow transplant rejection [Unknown]
  - Ketosis [Recovered/Resolved]
  - Ketonuria [Recovered/Resolved]
  - Glycosylated haemoglobin increased [Recovered/Resolved]
  - Diabetes mellitus [Unknown]
